FAERS Safety Report 10168149 (Version 1)
Quarter: 2014Q2

REPORT INFORMATION
  Report Type: Spontaneous
  Country: JP (occurrence: JP)
  Receive Date: 20140512
  Receipt Date: 20140512
  Transmission Date: 20141212
  Serious: Yes (Other)
  Sender: FDA-Public Use
  Company Number: JP-ACTAVIS-2014-09422

PATIENT
  Age: 50 Year
  Sex: Female
  Weight: 47 kg

DRUGS (2)
  1. MORPHINE (UNKNOWN) [Suspect]
     Indication: PAIN MANAGEMENT
     Dosage: 80-100 MG/DAY, CONTINUOUS INFUSION
     Route: 042
  2. FENTANYL [Suspect]
     Indication: PAIN MANAGEMENT
     Dosage: 12.6 MG/3DAYS
     Route: 062

REACTIONS (1)
  - Delirium [Recovered/Resolved]
